FAERS Safety Report 7410778-0 (Version None)
Quarter: 2011Q2

REPORT INFORMATION
  Report Type: 
  Country: None (occurrence: None)
  Receive Date: 20110413
  Receipt Date: 20110405
  Transmission Date: 20111010
  Serious: Yes (Disabling)
  Sender: FDA-Public Use
  Company Number: CH-US-EMD SERONO, INC.-7051864

PATIENT
  Sex: Female
  Weight: 60 kg

DRUGS (6)
  1. REBIF [Suspect]
     Indication: MULTIPLE SCLEROSIS
     Route: 058
     Dates: start: 19991201
  2. ATACAND [Concomitant]
     Route: 048
     Dates: start: 20060101, end: 20110201
  3. SEROPRAM [Concomitant]
     Route: 048
     Dates: start: 19990101
  4. REBIF [Suspect]
     Route: 058
     Dates: end: 20110217
  5. UROVAXUM (URO-VAXOM) [Concomitant]
     Route: 048
     Dates: start: 20080101
  6. FERROGRADUMENT RETARDT (FERROGRADUMET) [Concomitant]
     Route: 048
     Dates: start: 20070101

REACTIONS (3)
  - CARDIAC DISORDER [None]
  - RAYNAUD'S PHENOMENON [None]
  - MYOCARDIAL INFARCTION [None]
